FAERS Safety Report 11884689 (Version 1)
Quarter: 2016Q1

REPORT INFORMATION
  Report Type: Spontaneous
  Country: US (occurrence: US)
  Receive Date: 20160104
  Receipt Date: 20160104
  Transmission Date: 20160526
  Serious: Yes (Death, Hospitalization)
  Sender: FDA-Public Use
  Company Number: US-HOSPIRA-3119231

PATIENT
  Age: 48 Year
  Sex: Male
  Weight: 40.8 kg

DRUGS (3)
  1. INVESTIGATIONAL DRUG [Suspect]
     Active Substance: INVESTIGATIONAL PRODUCT
     Indication: SQUAMOUS CELL CARCINOMA OF HEAD AND NECK
     Dosage: VIA A GASTROINTESTINAL TUBE; LAST DOSE PRIOR TO THE SAE: 24 OCT 2015
     Dates: start: 20150623
  2. MORPHINE SULPHATE [Suspect]
     Active Substance: MORPHINE SULFATE
     Indication: PRODUCT USED FOR UNKNOWN INDICATION
     Dosage: VIA PATIENT-CONTROLLED ANALGESIA (PCA)
     Dates: start: 20150702
  3. INVESTIGATIONAL DRUG [Suspect]
     Active Substance: INVESTIGATIONAL PRODUCT
     Indication: SQUAMOUS CELL CARCINOMA OF HEAD AND NECK
     Dosage: LAST DOSE PRIOR TO THE SAE: 27 OCT 2015
     Route: 042
     Dates: start: 20150623

REACTIONS (5)
  - Pneumonia aspiration [Unknown]
  - Cardiac arrest [Fatal]
  - Failure to thrive [Unknown]
  - Haemorrhage [Fatal]
  - Toxicity to various agents [Unknown]

NARRATIVE: CASE EVENT DATE: 20151025
